FAERS Safety Report 6221862-1 (Version None)
Quarter: 2009Q2

REPORT INFORMATION
  Report Type: 
  Country: None (occurrence: None)
  Receive Date: 20090610
  Receipt Date: 20090604
  Transmission Date: 20091009
  Serious: Yes (Hospitalization)
  Sender: FDA-Public Use
  Company Number: IT-ABBOTT-09P-083-0496518-00

PATIENT
  Sex: Female

DRUGS (7)
  1. HUMIRA [Suspect]
     Indication: JUVENILE ARTHRITIS
     Route: 058
     Dates: start: 20081010
  2. HUMIRA [Suspect]
     Indication: UVEITIS
  3. DIAMOX [Concomitant]
     Indication: DRUG USE FOR UNKNOWN INDICATION
  4. COMBIGAN [Concomitant]
     Indication: EYE DISORDER
  5. LUXAZONE [Concomitant]
     Indication: EYE DISORDER
  6. ATROPINE [Concomitant]
     Indication: EYE DISORDER
  7. POLASE SACHETS [Concomitant]
     Indication: VITAMIN SUPPLEMENTATION

REACTIONS (7)
  - ABDOMINAL PAIN UPPER [None]
  - AGITATION [None]
  - CYANOSIS [None]
  - PALPITATIONS [None]
  - SKIN DISCOLOURATION [None]
  - SUFFOCATION FEELING [None]
  - VOMITING [None]
